FAERS Safety Report 4781408-1 (Version None)
Quarter: 2005Q3

REPORT INFORMATION
  Report Type: 
  Country: None (occurrence: None)
  Receive Date: 20050928
  Receipt Date: 20050922
  Transmission Date: 20060218
  Serious: Yes (Death, Life-Threatening, Hospitalization)
  Sender: FDA-Public Use
  Company Number: US-MERCK-0509USA03488

PATIENT
  Age: 88 Year
  Sex: Male

DRUGS (1)
  1. MEFOXIN [Suspect]
     Indication: BRONCHITIS
     Route: 065

REACTIONS (8)
  - CLOSTRIDIUM COLITIS [None]
  - COLITIS ISCHAEMIC [None]
  - CONFUSIONAL STATE [None]
  - DEATH [None]
  - LACTIC ACIDOSIS [None]
  - LETHARGY [None]
  - MEGACOLON [None]
  - MENTAL STATUS CHANGES [None]
